FAERS Safety Report 16814374 (Version 1)
Quarter: 2019Q3

REPORT INFORMATION
  Report Type: Spontaneous
  Country: CA (occurrence: CA)
  Receive Date: 20190917
  Receipt Date: 20190917
  Transmission Date: 20191005
  Serious: Yes (Congenital Anomaly, Other)
  Sender: FDA-Public Use
  Company Number: CA-TEVA-2019-CA-1107918

PATIENT
  Sex: Female

DRUGS (2)
  1. PAROXETINE HYDROCHLORIDE. [Suspect]
     Active Substance: PAROXETINE HYDROCHLORIDE
     Indication: DEPRESSION
     Route: 064
  2. PAROXETINE HYDROCHLORIDE. [Suspect]
     Active Substance: PAROXETINE HYDROCHLORIDE
     Indication: ANXIETY
     Dosage: 10 MILLIGRAM DAILY;
     Route: 064

REACTIONS (7)
  - Cleft palate [Unknown]
  - Craniofacial dysostosis [Unknown]
  - Craniosynostosis [Unknown]
  - Malocclusion [Unknown]
  - Cleft lip [Unknown]
  - Foetal exposure during pregnancy [Unknown]
  - Cytogenetic abnormality [Unknown]
